FAERS Safety Report 17133071 (Version 1)
Quarter: 2019Q4

REPORT INFORMATION
  Report Type: Spontaneous
  Country: US (occurrence: US)
  Receive Date: 20191118
  Receipt Date: 20191118
  Transmission Date: 20200122
  Serious: No
  Sender: FDA-Public Use
  Company Number: None

PATIENT
  Sex: Male

DRUGS (1)
  1. ?ALBUTEROL SULFATE INHALATION SOL, 2.5 MG NEPHRON PHARMACEUTICALS CORP [Suspect]
     Active Substance: ALBUTEROL SULFATE

REACTIONS (3)
  - Therapeutic product effect decreased [None]
  - Product odour abnormal [None]
  - Product quality issue [None]

NARRATIVE: CASE EVENT DATE: 20191116
